FAERS Safety Report 17097876 (Version 1)
Quarter: 2019Q4

REPORT INFORMATION
  Report Type: Spontaneous
  Country: US (occurrence: US)
  Receive Date: 20191202
  Receipt Date: 20191202
  Transmission Date: 20200122
  Serious: Yes (Hospitalization)
  Sender: FDA-Public Use
  Company Number: US-MYLANLABS-2019M1116417

PATIENT
  Age: 73 Year
  Sex: Female

DRUGS (8)
  1. EPHEDRINE. [Concomitant]
     Active Substance: EPHEDRINE
     Indication: PROPHYLAXIS
     Dosage: 10 MILLIGRAM
     Route: 042
  2. PROPOFOL. [Concomitant]
     Active Substance: PROPOFOL
     Dosage: 100 MICROGRAM/KILOGRAM, QMINUTE
     Route: 042
  3. FENTANYL. [Suspect]
     Active Substance: FENTANYL
     Indication: ANALGESIC THERAPY
     Dosage: 100 MICROGRAM
     Route: 042
  4. FENTANYL. [Suspect]
     Active Substance: FENTANYL
     Dosage: 50 MICROGRAM
     Route: 042
  5. CEFAZOLIN [Concomitant]
     Active Substance: CEFAZOLIN
     Indication: ANTIBIOTIC PROPHYLAXIS
     Dosage: 2 GRAM
     Route: 042
  6. MORPHINE [Suspect]
     Active Substance: MORPHINE
     Indication: SPINAL ANAESTHESIA
     Dosage: 0.2 MILLIGRAM
     Route: 037
  7. BUPIVACAINE. [Suspect]
     Active Substance: BUPIVACAINE
     Indication: SPINAL ANAESTHESIA
     Dosage: 2.75 MILLILITER
     Route: 037
  8. PROPOFOL. [Concomitant]
     Active Substance: PROPOFOL
     Indication: SEDATIVE THERAPY
     Dosage: 80 MICROGRAM/KILOGRAM, QMINUTE
     Route: 042

REACTIONS (2)
  - Anaemia [Recovered/Resolved]
  - Confusional state [Recovered/Resolved]
